FAERS Safety Report 10076044 (Version 4)
Quarter: 2014Q3

REPORT INFORMATION
  Report Type: Spontaneous
  Country: JP (occurrence: JP)
  Receive Date: 20140414
  Receipt Date: 20140929
  Transmission Date: 20150326
  Serious: Yes (Hospitalization)
  Sender: FDA-Public Use
  Company Number: JP-009507513-1404JPN007433

PATIENT
  Age: 51 Year
  Sex: Male
  Weight: 58 kg

DRUGS (3)
  1. ISENTRESS [Suspect]
     Active Substance: RALTEGRAVIR POTASSIUM
     Indication: HIV INFECTION
     Dosage: 800 MG, TWICE A DAY
     Route: 048
     Dates: start: 20130829, end: 20140109
  2. EPZICOM [Concomitant]
     Active Substance: ABACAVIR SULFATE\LAMIVUDINE
     Indication: HIV INFECTION
     Dosage: 1 TABLET ONCE A DAY
     Route: 048
     Dates: start: 20130829
  3. MAGNESIUM OXIDE. [Concomitant]
     Active Substance: MAGNESIUM OXIDE
     Indication: CONSTIPATION
     Dosage: 1 G, BID
     Route: 048
     Dates: start: 20131031, end: 20131130

REACTIONS (8)
  - Diarrhoea [Unknown]
  - Eating disorder [Unknown]
  - Pyrexia [Unknown]
  - Headache [Recovering/Resolving]
  - Blood creatine phosphokinase increased [Recovered/Resolved]
  - Malaise [Not Recovered/Not Resolved]
  - Vomiting [Unknown]
  - Duodenal ulcer [Unknown]

NARRATIVE: CASE EVENT DATE: 2013
